FAERS Safety Report 10381400 (Version 1)
Quarter: 2014Q3

REPORT INFORMATION
  Report Type: Spontaneous
  Country: US (occurrence: US)
  Receive Date: 20140813
  Receipt Date: 20140813
  Transmission Date: 20150326
  Serious: Yes (Hospitalization)
  Sender: FDA-Public Use
  Company Number: US-B.I. PHARMACEUTICALS,INC./RIDGEFIELD-2014-BI-36450BP

PATIENT
  Age: 81 Year
  Sex: Male

DRUGS (8)
  1. LOPRESSOR [Concomitant]
     Active Substance: METOPROLOL TARTRATE
     Dosage: 100 MG
     Route: 048
  2. SENNOSIDES [Concomitant]
     Active Substance: SENNOSIDES
     Dosage: 2 ANZ
     Route: 048
  3. FLOMAX [Concomitant]
     Active Substance: TAMSULOSIN HYDROCHLORIDE
     Dosage: 0.4 MG
     Route: 048
  4. MULTAQ [Concomitant]
     Active Substance: DRONEDARONE
     Dosage: 800 MG
     Route: 048
  5. PRADAXA [Suspect]
     Active Substance: DABIGATRAN ETEXILATE MESYLATE
     Indication: ATRIAL FIBRILLATION
     Dosage: 150 MG
     Route: 048
     Dates: end: 20121121
  6. LOSARTAN [Concomitant]
     Active Substance: LOSARTAN
     Dosage: 25 MG
     Route: 048
  7. THYROID ARMOUR [Concomitant]
     Dosage: 90 MG
     Route: 048
  8. NITROGLYCERIN. [Concomitant]
     Active Substance: NITROGLYCERIN
     Indication: CHEST PAIN
     Route: 060

REACTIONS (4)
  - Laceration [Unknown]
  - Lower gastrointestinal haemorrhage [Recovered/Resolved]
  - Anaemia [Unknown]
  - Fall [Unknown]

NARRATIVE: CASE EVENT DATE: 20121121
